FAERS Safety Report 9559785 (Version 2)
Quarter: 2013Q4

REPORT INFORMATION
  Report Type: Spontaneous
  Country: US (occurrence: US)
  Receive Date: 20130927
  Receipt Date: 20131017
  Transmission Date: 20140711
  Serious: Yes (Other)
  Sender: FDA-Public Use
  Company Number: US-PFIZER INC-2013276434

PATIENT
  Age: 53 Year
  Sex: Male
  Weight: 81.63 kg

DRUGS (2)
  1. DILANTIN [Suspect]
     Indication: EPILEPSY
     Dosage: UNK
     Route: 048
     Dates: start: 1984
  2. DILANTIN [Suspect]
     Indication: EPILEPSY
     Dosage: UNK,SINGLE
     Dates: start: 1989, end: 1989

REACTIONS (12)
  - Parkinson^s disease [Unknown]
  - Thrombosis [Recovered/Resolved]
  - Burning sensation [Unknown]
  - Nervous system disorder [Unknown]
  - Hyperacusis [Unknown]
  - Tremor [Unknown]
  - Paraesthesia [Unknown]
  - Feeling abnormal [Unknown]
  - Muscle spasms [Unknown]
  - Gait disturbance [Unknown]
  - Body temperature fluctuation [Unknown]
  - Drug ineffective [Unknown]
